FAERS Safety Report 5751352-1 (Version None)
Quarter: 2008Q2

REPORT INFORMATION
  Report Type: 
  Country: None (occurrence: None)
  Receive Date: 20080519
  Receipt Date: 20071019
  Transmission Date: 20081010
  Serious: Yes (Other)
  Sender: FDA-Public Use
  Company Number: US-WYE-H00778307

PATIENT
  Age: 35 Year
  Sex: Female

DRUGS (2)
  1. ADVIL ALLERGY SINUS [Suspect]
     Indication: SINUS HEADACHE
     Dosage: 1 CAPLET, ORAL ; 1 CAPLET, ORAL
     Route: 048
     Dates: start: 20070101, end: 20070101
  2. ADVIL ALLERGY SINUS [Suspect]
     Indication: SINUS HEADACHE
     Dosage: 1 CAPLET, ORAL ; 1 CAPLET, ORAL
     Route: 048
     Dates: start: 20071018, end: 20071019

REACTIONS (2)
  - DIZZINESS [None]
  - HANGOVER [None]
